FAERS Safety Report 23798727 (Version 1)
Quarter: 2024Q2

REPORT INFORMATION
  Report Type: Spontaneous
  Country: US (occurrence: None)
  Receive Date: 20240427
  Receipt Date: 20240427
  Transmission Date: 20240716
  Serious: Yes (Life-Threatening, Hospitalization)
  Sender: FDA-Public Use
  Company Number: None

PATIENT
  Age: 15 Year
  Sex: Male
  Weight: 64.35 kg

DRUGS (5)
  1. DUPIXENT [Suspect]
     Active Substance: DUPILUMAB
     Indication: Dermatitis atopic
     Dosage: OTHER QUANTITY : 1 INJECTION(S);?
     Route: 058
     Dates: start: 20240410, end: 20240410
  2. DUPIXENT [Suspect]
     Active Substance: DUPILUMAB
     Indication: Eczema
  3. TRIAMCINOLONE [Concomitant]
     Active Substance: TRIAMCINOLONE
  4. DESONIDE [Concomitant]
     Active Substance: DESONIDE
  5. ZYRTEC [Concomitant]
     Active Substance: CETIRIZINE HYDROCHLORIDE

REACTIONS (9)
  - Dyspnoea [None]
  - Pyrexia [None]
  - Heart rate increased [None]
  - White blood cell count increased [None]
  - Lethargy [None]
  - Blood pressure decreased [None]
  - Lip swelling [None]
  - Hypersensitivity [None]
  - Sepsis [None]

NARRATIVE: CASE EVENT DATE: 20240412
